FAERS Safety Report 11835123 (Version 10)
Quarter: 2019Q2

REPORT INFORMATION
  Report Type: Spontaneous
  Country: BR (occurrence: BR)
  Receive Date: 20151215
  Receipt Date: 20190410
  Transmission Date: 20190711
  Serious: Yes (Other)
  Sender: FDA-Public Use
  Company Number: BR-AMGEN-BRASP2015132417

PATIENT
  Age: 51 Year
  Sex: Female
  Weight: 81 kg

DRUGS (40)
  1. FOLIC ACID. [Concomitant]
     Active Substance: FOLIC ACID
     Dosage: 1 TABLET (UNSPECIFIED DOSE), 3X/WEEK
  2. METHOTREXATE. [Concomitant]
     Active Substance: METHOTREXATE
     Dosage: 8 TABLETS OF 2.5MG (20 MG), WEEKLY
  3. METHOTREXATE. [Concomitant]
     Active Substance: METHOTREXATE
     Dosage: 20 MG, WEEKLY (8 TABLETS OF 2.5 MG WEEKLY)
  4. CALCIUM [Concomitant]
     Active Substance: CALCIUM
     Dosage: 4 TABLETS OF 1200MG (4800 MG), DAILY
  5. CALCIUM [Concomitant]
     Active Substance: CALCIUM
     Dosage: 4800 MG, DAILY (4 TABLETS OF 1200 MG PER DAY)
  6. DEPURA [Concomitant]
     Active Substance: CHOLECALCIFEROL
     Dosage: UNK
  7. METHOTREXATE. [Concomitant]
     Active Substance: METHOTREXATE
     Dosage: 20 MG, WEEKLY (8 TABLETS OF 2.5 MG WEEKLY)
  8. PREDNISONE. [Concomitant]
     Active Substance: PREDNISONE
     Dosage: ONE TABLET (5 MG), WEEKLY
  9. PREDNISONE. [Concomitant]
     Active Substance: PREDNISONE
     Dosage: ONE TABLET (5 MG), WEEKLY
  10. PREDNISONE. [Concomitant]
     Active Substance: PREDNISONE
     Dosage: 5 MG, WEEKLY
  11. METHOTREXATE. [Concomitant]
     Active Substance: METHOTREXATE
     Dosage: 8 TABLETS OF 2.5MG (20 MG), WEEKLY
  12. METHOTREXATE. [Concomitant]
     Active Substance: METHOTREXATE
     Dosage: 8 TABLETS OF 2.5MG (20 MG), WEEKLY
  13. CALCIUM [Concomitant]
     Active Substance: CALCIUM
     Dosage: 4 TABLETS OF 1200MG (4800 MG), DAILY
  14. CALCIUM [Concomitant]
     Active Substance: CALCIUM
     Dosage: 4 TABLETS OF 1200MG (4800 MG), DAILY
  15. CALCIUM [Concomitant]
     Active Substance: CALCIUM
     Dosage: 4800 MG, DAILY (4 TABLETS OF 1200 MG PER DAY)
  16. METHOTREXATE. [Concomitant]
     Active Substance: METHOTREXATE
     Dosage: 8 TABLETS OF 2.5MG (20 MG), WEEKLY
  17. CALCIUM [Concomitant]
     Active Substance: CALCIUM
     Dosage: 4 TABLETS OF 1200MG (4800 MG), DAILY
  18. PREDNISOLONE. [Concomitant]
     Active Substance: PREDNISOLONE
     Dosage: UNK
  19. DEPURA [Concomitant]
     Active Substance: CHOLECALCIFEROL
     Dosage: UNK (10 DROPS)
  20. FOLIC ACID. [Concomitant]
     Active Substance: FOLIC ACID
     Dosage: 1 TABLET (UNSPECIFIED DOSE), 3X/WEEK
  21. FOLIC ACID. [Concomitant]
     Active Substance: FOLIC ACID
     Dosage: 1 DF, CYCLIC (ONE TABLET THREE TIMES PER WEEK)
  22. PREDNISONE. [Concomitant]
     Active Substance: PREDNISONE
     Dosage: 5 MG, WEEKLY
  23. METHOTREXATE. [Concomitant]
     Active Substance: METHOTREXATE
     Dosage: 8 TABLETS OF 2.5MG (20 MG), WEEKLY
  24. PREDNISOLONE. [Concomitant]
     Active Substance: PREDNISOLONE
     Dosage: UNK
  25. PREDNISOLONE. [Concomitant]
     Active Substance: PREDNISOLONE
     Dosage: UNK
  26. ENBREL [Suspect]
     Active Substance: ETANERCEPT
     Indication: RHEUMATOID ARTHRITIS
     Dosage: 50 MG, ONCE WEEKLY
     Route: 058
     Dates: start: 20140702
  27. FOLIC ACID. [Concomitant]
     Active Substance: FOLIC ACID
     Dosage: 1 DF, CYCLIC (ONE TABLET THREE TIMES PER WEEK)
  28. PREDNISONE. [Concomitant]
     Active Substance: PREDNISONE
     Dosage: ONE TABLET (5 MG), DAILY
  29. CALCIUM [Concomitant]
     Active Substance: CALCIUM
     Dosage: 4 TABLETS OF 1200MG (4800 MG), DAILY
  30. FOLIC ACID. [Concomitant]
     Active Substance: FOLIC ACID
     Dosage: 1 TABLET (UNSPECIFIED DOSE), 3X/WEEK
  31. FOLIC ACID. [Concomitant]
     Active Substance: FOLIC ACID
     Dosage: 1 TABLET (UNSPECIFIED DOSE), 3X/WEEK
  32. PREDNISONE. [Concomitant]
     Active Substance: PREDNISONE
     Dosage: ONE TABLET (5 MG), WEEKLY
  33. PREDNISOLONE. [Concomitant]
     Active Substance: PREDNISOLONE
     Dosage: UNK
  34. PREDNISOLONE. [Concomitant]
     Active Substance: PREDNISOLONE
     Dosage: UNK
  35. DEPURA [Concomitant]
     Active Substance: CHOLECALCIFEROL
     Dosage: 10 DROPS
  36. ENBREL [Suspect]
     Active Substance: ETANERCEPT
     Dosage: UNK
     Route: 065
  37. FOLIC ACID. [Concomitant]
     Active Substance: FOLIC ACID
     Dosage: 1 TABLET (UNSPECIFIED DOSE), 3X/WEEK
  38. PREDNISONE. [Concomitant]
     Active Substance: PREDNISONE
     Dosage: ONE TABLET (5 MG), WEEKLY
  39. PREDNISOLONE. [Concomitant]
     Active Substance: PREDNISOLONE
     Dosage: UNK
  40. PREDNISOLONE. [Concomitant]
     Active Substance: PREDNISOLONE
     Dosage: UNK

REACTIONS (22)
  - Wrong technique in product usage process [Not Recovered/Not Resolved]
  - Somnolence [Unknown]
  - Bladder prolapse [Unknown]
  - Pain in extremity [Not Recovered/Not Resolved]
  - Anaemia [Unknown]
  - Leiomyoma [Not Recovered/Not Resolved]
  - Uterine leiomyoma [Not Recovered/Not Resolved]
  - Gastritis [Not Recovered/Not Resolved]
  - Menopausal symptoms [Recovered/Resolved]
  - Muscle spasms [Unknown]
  - Venous injury [Unknown]
  - Sensitivity to weather change [Unknown]
  - Injection site discolouration [Not Recovered/Not Resolved]
  - Injection site erythema [Unknown]
  - Bladder disorder [Not Recovered/Not Resolved]
  - Injection site haemorrhage [Unknown]
  - Abdominal pain [Not Recovered/Not Resolved]
  - Dyspnoea [Not Recovered/Not Resolved]
  - Abdominal pain upper [Not Recovered/Not Resolved]
  - Haemorrhoids [Not Recovered/Not Resolved]
  - Asthenia [Unknown]
  - Condition aggravated [Not Recovered/Not Resolved]

NARRATIVE: CASE EVENT DATE: 201511
